FAERS Safety Report 13329103 (Version 1)
Quarter: 2017Q1

REPORT INFORMATION
  Report Type: Spontaneous
  Country: US (occurrence: US)
  Receive Date: 20170310
  Receipt Date: 20170310
  Transmission Date: 20170428
  Serious: Yes (Hospitalization)
  Sender: FDA-Public Use
  Company Number: None

PATIENT
  Age: 63 Year
  Sex: Male

DRUGS (14)
  1. AZILECT [Concomitant]
     Active Substance: RASAGILINE MESYLATE
  2. OSELTAMIVIR [Concomitant]
     Active Substance: OSELTAMIVIR
  3. REQUIP [Concomitant]
     Active Substance: ROPINIROLE HYDROCHLORIDE
  4. LIPITOR [Concomitant]
     Active Substance: ATORVASTATIN CALCIUM
  5. AMLODIPINE [Concomitant]
     Active Substance: AMLODIPINE BESYLATE
  6. LOSARTAN. [Concomitant]
     Active Substance: LOSARTAN
  7. TASIGNA [Suspect]
     Active Substance: NILOTINIB
     Indication: CHRONIC MYELOID LEUKAEMIA
     Route: 048
     Dates: start: 20101105
  8. SIMVASTATIN. [Concomitant]
     Active Substance: SIMVASTATIN
  9. TRAZODONE [Concomitant]
     Active Substance: TRAZODONE HYDROCHLORIDE
  10. SINEMET [Concomitant]
     Active Substance: CARBIDOPA\LEVODOPA
  11. VIAGRA [Concomitant]
     Active Substance: SILDENAFIL CITRATE
  12. TESTOSTERONE. [Concomitant]
     Active Substance: TESTOSTERONE
  13. BOOST [Concomitant]
     Active Substance: DIETARY SUPPLEMENT
  14. CLARITIN [Concomitant]
     Active Substance: LORATADINE

REACTIONS (2)
  - Hospitalisation [None]
  - Drug dose omission [None]

NARRATIVE: CASE EVENT DATE: 20170119
